FAERS Safety Report 10475742 (Version 1)
Quarter: 2014Q3

REPORT INFORMATION
  Report Type: Spontaneous
  Country: EG (occurrence: EG)
  Receive Date: 20140925
  Receipt Date: 20140925
  Transmission Date: 20150326
  Serious: Yes (Death)
  Sender: FDA-Public Use
  Company Number: EG-B.I. PHARMACEUTICALS,INC./RIDGEFIELD-2014-BI-45788ET

PATIENT
  Age: 45 Year
  Sex: Female

DRUGS (1)
  1. PRADAXA [Suspect]
     Active Substance: DABIGATRAN ETEXILATE MESYLATE
     Indication: POSTOPERATIVE CARE
     Dosage: 1 ANZ
     Route: 048

REACTIONS (2)
  - Deep vein thrombosis [Fatal]
  - Pulmonary embolism [Fatal]
